FAERS Safety Report 4514586-X (Version None)
Quarter: 2004Q3

REPORT INFORMATION
  Report Type: 
  Country: None (occurrence: None)
  Receive Date: 20040927
  Receipt Date: 20040616
  Transmission Date: 20050211
  Serious: No
  Sender: FDA-Public Use
  Company Number: US080376

PATIENT
  Age: 57 Year
  Sex: Female

DRUGS (7)
  1. NEULASTA [Suspect]
     Indication: CHEMOTHERAPY
     Dosage: 6 MG, 1 IN 1 DAYS, SC
     Route: 058
     Dates: start: 20040101, end: 20040601
  2. NEUPOGEN [Concomitant]
  3. EPOETIN ALFA (EPOETIN ALFA) [Concomitant]
  4. HYDROMORPHONE HYDROCHLORIDE [Concomitant]
  5. GABAPENTIN [Concomitant]
  6. DOXORUBICIN HCL [Concomitant]
  7. CYCLOPHOSPHAMIDE [Concomitant]

REACTIONS (1)
  - ABDOMINAL PAIN [None]
